FAERS Safety Report 24987508 (Version 1)
Quarter: 2025Q1

REPORT INFORMATION
  Report Type: Spontaneous
  Country: JP (occurrence: JP)
  Receive Date: 20250219
  Receipt Date: 20250219
  Transmission Date: 20250408
  Serious: Yes (Hospitalization)
  Sender: ELI LILLY AND COMPANY
  Company Number: JP-ELI_LILLY_AND_COMPANY-JP202502011991

PATIENT
  Age: 68 Year
  Sex: Female
  Weight: 55.6 kg

DRUGS (19)
  1. TADALAFIL [Suspect]
     Active Substance: TADALAFIL
     Indication: Pulmonary arterial hypertension
     Dosage: 40 MG, DAILY
     Route: 048
     Dates: start: 20160518
  2. UPTRAVI [Suspect]
     Active Substance: SELEXIPAG
     Indication: Pulmonary arterial hypertension
     Dosage: 0.4 MG, DAILY
     Route: 048
     Dates: start: 20161130, end: 20161213
  3. UPTRAVI [Suspect]
     Active Substance: SELEXIPAG
     Dosage: 0.8 MG, DAILY
     Route: 048
     Dates: start: 20161214, end: 20170110
  4. UPTRAVI [Suspect]
     Active Substance: SELEXIPAG
     Dosage: 1.2 UNK
     Route: 048
     Dates: start: 20170111, end: 20170124
  5. UPTRAVI [Suspect]
     Active Substance: SELEXIPAG
     Dosage: 1.6 UNK
     Route: 048
     Dates: start: 20170125, end: 20170207
  6. UPTRAVI [Suspect]
     Active Substance: SELEXIPAG
     Dosage: 2 UNK
     Route: 048
     Dates: start: 20170208, end: 20170221
  7. UPTRAVI [Suspect]
     Active Substance: SELEXIPAG
     Dosage: 2.4 UNK
     Route: 048
     Dates: start: 20170222, end: 20170307
  8. UPTRAVI [Suspect]
     Active Substance: SELEXIPAG
     Dosage: 2.8 UNK
     Route: 048
     Dates: start: 20170308, end: 20170321
  9. UPTRAVI [Suspect]
     Active Substance: SELEXIPAG
     Dosage: 3.2 UNK
     Route: 048
     Dates: start: 20170321
  10. OPSUMIT [Concomitant]
     Active Substance: MACITENTAN
     Indication: Pulmonary arterial hypertension
     Dates: start: 20160331
  11. LANSOPRAZOLE OD CHEMIPHAR [Concomitant]
     Dates: start: 2015
  12. FUROSEMIDE [Concomitant]
     Active Substance: FUROSEMIDE
     Dates: start: 201410
  13. SPIRONOLACTONE [Concomitant]
     Active Substance: SPIRONOLACTONE
     Dates: start: 20141201
  14. JANUVIA [Concomitant]
     Active Substance: SITAGLIPTIN PHOSPHATE
     Indication: Type 2 diabetes mellitus
     Dosage: 25 MG, DAILY
     Dates: start: 2015, end: 20180911
  15. ELIQUIS [Concomitant]
     Active Substance: APIXABAN
     Dates: start: 2015
  16. SODIUM FERROUS CITRATE [Concomitant]
     Active Substance: SODIUM FERROUS CITRATE
     Dosage: 100 MG, DAILY
     Dates: start: 20160713
  17. BISOPROLOL [Concomitant]
     Active Substance: BISOPROLOL
     Dates: start: 201608
  18. BISOPROLOL [Concomitant]
     Active Substance: BISOPROLOL
     Dates: start: 20191002
  19. NERIZA [Concomitant]
     Indication: Haemorrhoids
     Dates: start: 20160616, end: 20180612

REACTIONS (3)
  - Cardiac failure [Not Recovered/Not Resolved]
  - Musculoskeletal stiffness [Recovered/Resolved]
  - Diarrhoea [Recovered/Resolved]

NARRATIVE: CASE EVENT DATE: 20170208
